FAERS Safety Report 8733860 (Version 2)
Quarter: 2012Q4

REPORT INFORMATION
  Report Type: 
  Country: JP (occurrence: JP)
  Receive Date: 20120821
  Receipt Date: 20121001
  Transmission Date: 20130627
  Serious: No
  Sender: FDA-Public Use
  Company Number: PHHY2012JP071823

PATIENT
  Sex: Female

DRUGS (1)
  1. VOLTAREN [Suspect]
     Indication: OSTEOARTHRITIS
     Dosage: 50 mg daily
     Route: 048

REACTIONS (1)
  - Urinary retention [Unknown]
